FAERS Safety Report 23581547 (Version 2)
Quarter: 2024Q1

REPORT INFORMATION
  Report Type: Spontaneous
  Country: IN (occurrence: IN)
  Receive Date: 20240229
  Receipt Date: 20240314
  Transmission Date: 20240409
  Serious: Yes (Other)
  Sender: FDA-Public Use
  Company Number: IN-PFIZER INC-2021162175

PATIENT
  Age: 61 Year
  Sex: Female
  Weight: 82 kg

DRUGS (24)
  1. PALBOCICLIB [Suspect]
     Active Substance: PALBOCICLIB
     Indication: Breast cancer metastatic
     Dosage: 125 MG, 1X/DAY
     Route: 048
     Dates: start: 20200702
  2. PALBOCICLIB [Suspect]
     Active Substance: PALBOCICLIB
     Dosage: 125 MG, 1X/DAY
     Route: 048
     Dates: start: 20200717
  3. PALBOCICLIB [Suspect]
     Active Substance: PALBOCICLIB
     Dosage: 125 MG, 1X/DAY
     Route: 048
     Dates: start: 202007
  4. PALBOCICLIB [Suspect]
     Active Substance: PALBOCICLIB
     Dosage: 125 MG, 1X/DAY
     Route: 048
     Dates: start: 20210709
  5. PALBOCICLIB [Suspect]
     Active Substance: PALBOCICLIB
     Dosage: 125 MG, CYCLIC (ONCE A DAY FOR 21 DAYS NO OFF DAY MENTIONED)
  6. FULVESTRANT [Concomitant]
     Active Substance: FULVESTRANT
     Dosage: 250 MG EACH GLUTEAL REGION, TOTAL DOSE 500 MG
     Route: 030
  7. FULVESTRANT [Concomitant]
     Active Substance: FULVESTRANT
     Dosage: UNK
     Route: 048
  8. FULVESTRANT [Concomitant]
     Active Substance: FULVESTRANT
     Dosage: 250 MG
     Dates: start: 20230602
  9. FULVESTRANT [Concomitant]
     Active Substance: FULVESTRANT
     Dosage: 250 MG
     Dates: start: 20230802
  10. FULVESTRANT [Concomitant]
     Active Substance: FULVESTRANT
     Dosage: 250 MG BOTH GLUTEAL REGION IM
     Route: 030
     Dates: start: 20230902
  11. FULVESTRANT [Concomitant]
     Active Substance: FULVESTRANT
     Dosage: 250MG-BOTH GLUTEAL REGION- IM
     Route: 030
     Dates: start: 20231002
  12. FULVESTRANT [Concomitant]
     Active Substance: FULVESTRANT
     Dosage: 250MG-BOTH GLUTEAL REGION- IM
     Route: 030
     Dates: start: 20231102
  13. FULVESTRANT [Concomitant]
     Active Substance: FULVESTRANT
     Dosage: 250MG-BOTH GLUTEAL REGION- IM
     Route: 030
     Dates: start: 20231230
  14. FULVESTRANT [Concomitant]
     Active Substance: FULVESTRANT
     Dosage: 250MG-BOTH GLUTEAL REGION- IM
     Route: 030
     Dates: start: 20240102
  15. FULVESTRANT [Concomitant]
     Active Substance: FULVESTRANT
     Dosage: 250MG-BOTH GLUTEAL REGION- IM
     Route: 030
     Dates: start: 20240202
  16. DENOSUMAB [Concomitant]
     Active Substance: DENOSUMAB
     Dosage: 120 MG
     Route: 058
     Dates: start: 20230602
  17. DENOSUMAB [Concomitant]
     Active Substance: DENOSUMAB
     Dosage: 120 MG
     Route: 058
     Dates: start: 20230802
  18. DENOSUMAB [Concomitant]
     Active Substance: DENOSUMAB
     Dosage: 120 MG
     Route: 058
     Dates: start: 20230902
  19. DENOSUMAB [Concomitant]
     Active Substance: DENOSUMAB
     Dosage: 60 MG
     Route: 058
     Dates: start: 20231002
  20. DENOSUMAB [Concomitant]
     Active Substance: DENOSUMAB
     Dosage: 60 MG
     Route: 058
     Dates: start: 20231102
  21. DENOSUMAB [Concomitant]
     Active Substance: DENOSUMAB
     Dosage: 60 MG
     Route: 058
     Dates: start: 20231230
  22. DENOSUMAB [Concomitant]
     Active Substance: DENOSUMAB
     Dosage: 60 MG
     Route: 058
     Dates: start: 20240102
  23. DENOSUMAB [Concomitant]
     Active Substance: DENOSUMAB
     Dosage: 60 MG
     Route: 058
     Dates: start: 20240202
  24. ZOMETA [Concomitant]
     Active Substance: ZOLEDRONIC ACID
     Dosage: 4 MG
     Dates: start: 20230102

REACTIONS (31)
  - Pneumonia [Recovering/Resolving]
  - Body mass index increased [Unknown]
  - Blood parathyroid hormone increased [Unknown]
  - Ear swelling [Unknown]
  - Pain in extremity [Unknown]
  - Nodule [Unknown]
  - Pruritus [Not Recovered/Not Resolved]
  - Arthralgia [Not Recovered/Not Resolved]
  - Abdominal pain upper [Unknown]
  - Blood pressure increased [Unknown]
  - Insomnia [Unknown]
  - Intervertebral disc compression [Unknown]
  - Plantar fasciitis [Unknown]
  - Muscle spasms [Unknown]
  - Bone pain [Unknown]
  - Musculoskeletal chest pain [Unknown]
  - Cough [Unknown]
  - Frequent bowel movements [Unknown]
  - Flatulence [Unknown]
  - Nasal congestion [Unknown]
  - Dyspnoea [Unknown]
  - Wheezing [Recovering/Resolving]
  - Dysuria [Recovering/Resolving]
  - Haemoglobin decreased [Unknown]
  - White blood cell count decreased [Unknown]
  - Asthenia [Unknown]
  - Neutrophil count decreased [Unknown]
  - Fatigue [Unknown]
  - Urinary tract infection [Recovering/Resolving]
  - Asthma [Unknown]
  - Dry skin [Unknown]

NARRATIVE: CASE EVENT DATE: 20210312
